FAERS Safety Report 23147045 (Version 1)
Quarter: 2023Q4

REPORT INFORMATION
  Report Type: Spontaneous
  Country: US (occurrence: US)
  Receive Date: 20231106
  Receipt Date: 20231106
  Transmission Date: 20240109
  Serious: No
  Sender: FDA-Public Use
  Company Number: US-drreddys-SPO/USA/23/0180669

PATIENT
  Age: 66 Year
  Sex: Female

DRUGS (1)
  1. VENLAFAXINE HYDROCHLORIDE [Suspect]
     Active Substance: VENLAFAXINE HYDROCHLORIDE
     Indication: Depression

REACTIONS (3)
  - Rapid eye movement sleep behaviour disorder [Recovered/Resolved]
  - Unmasking of previously unidentified disease [Unknown]
  - Drug-disease interaction [Unknown]
